FAERS Safety Report 6653993-6 (Version None)
Quarter: 2010Q1

REPORT INFORMATION
  Report Type: 
  Country: None (occurrence: None)
  Receive Date: 20100326
  Receipt Date: 20100324
  Transmission Date: 20100710
  Serious: Yes (Death)
  Sender: FDA-Public Use
  Company Number: JP-ELI_LILLY_AND_COMPANY-JP201002000996

PATIENT
  Sex: Female
  Weight: 54 kg

DRUGS (3)
  1. GEMZAR [Suspect]
     Indication: OVARIAN CANCER RECURRENT
     Dosage: 1400 MG, OTHER
     Route: 042
     Dates: start: 20091117, end: 20091124
  2. GEMZAR [Suspect]
     Dosage: 900 MG, OTHER
     Route: 042
     Dates: start: 20091208, end: 20100112
  3. URSO 250 [Concomitant]
     Indication: HEPATIC FUNCTION ABNORMAL
     Dosage: 100 MG, 3/D
     Route: 048
     Dates: start: 20100112, end: 20100124

REACTIONS (3)
  - INTERSTITIAL LUNG DISEASE [None]
  - OFF LABEL USE [None]
  - PLATELET COUNT DECREASED [None]
